FAERS Safety Report 10180273 (Version 1)
Quarter: 2014Q2

REPORT INFORMATION
  Report Type: Spontaneous
  Country: US (occurrence: US)
  Receive Date: 20140519
  Receipt Date: 20140519
  Transmission Date: 20141212
  Serious: No
  Sender: FDA-Public Use
  Company Number: US-AMGEN INC.-USASP2013081956

PATIENT
  Age: 84 Year
  Sex: Female

DRUGS (5)
  1. PROLIA [Suspect]
     Indication: OSTEOPOROSIS POSTMENOPAUSAL
     Route: 065
  2. B COMPLEX                          /00212701/ [Concomitant]
  3. NEXIUM                             /01479302/ [Concomitant]
  4. CALCIUM WITH VITAMIN D             /00944201/ [Concomitant]
  5. BUPROPION                          /00700502/ [Concomitant]
     Dosage: UNK UNK, BID

REACTIONS (1)
  - Back pain [Not Recovered/Not Resolved]
